FAERS Safety Report 7170450-1 (Version None)
Quarter: 2010Q4

REPORT INFORMATION
  Report Type: 
  Country: None (occurrence: None)
  Receive Date: 20101203
  Receipt Date: 20101122
  Transmission Date: 20110411
  Serious: Yes (Hospitalization)
  Sender: FDA-Public Use
  Company Number: 2010MA004802

PATIENT
  Age: 72 Year
  Sex: Male

DRUGS (4)
  1. DICLOFENAC SODIUM DELAYED-RELEASE TABLETS, 50 MG (PURPAC) (DICLOFENAC) [Suspect]
     Indication: PROCEDURAL PAIN
     Dosage: 50 MG, TID; PO
     Route: 048
     Dates: start: 20101012, end: 20101015
  2. PRADAXA [Suspect]
     Indication: THROMBOSIS PROPHYLAXIS
     Dosage: PO
     Route: 048
     Dates: start: 20101012, end: 20101019
  3. ACETAMINOPHEN [Concomitant]
  4. CODEINE [Concomitant]

REACTIONS (3)
  - HAEMOGLOBIN DECREASED [None]
  - KNEE ARTHROPLASTY [None]
  - MELAENA [None]
